FAERS Safety Report 8598297-X (Version None)
Quarter: 2012Q3

REPORT INFORMATION
  Report Type: 
  Country: None (occurrence: None)
  Receive Date: 20120816
  Receipt Date: 20120808
  Transmission Date: 20120928
  Serious: Yes (Other)
  Sender: FDA-Public Use
  Company Number: JP-ABBOTT-12P-087-0963491-00

PATIENT
  Age: 1 Year
  Sex: Female

DRUGS (6)
  1. ZONISAMIDE [Concomitant]
     Indication: PRODUCT USED FOR UNKNOWN INDICATION
  2. PHENOBARBITAL TAB [Suspect]
     Indication: INFANTILE SPASMS
     Route: 065
  3. VALPROIC ACID [Suspect]
     Indication: INFANTILE SPASMS
     Route: 065
  4. TOPIRAMATE [Suspect]
     Indication: INFANTILE SPASMS
     Route: 065
  5. CLONAZEPAM [Suspect]
     Indication: INFANTILE SPASMS
     Route: 065
  6. CORTICOTROPIN [Concomitant]
     Indication: PRODUCT USED FOR UNKNOWN INDICATION

REACTIONS (2)
  - ATONIC SEIZURES [None]
  - DRUG INEFFECTIVE [None]
